FAERS Safety Report 16000980 (Version 1)
Quarter: 2019Q1

REPORT INFORMATION
  Report Type: Spontaneous
  Country: GB (occurrence: GB)
  Receive Date: 20190225
  Receipt Date: 20190225
  Transmission Date: 20190418
  Serious: Yes (Life-Threatening)
  Sender: FDA-Public Use
  Company Number: GB-009507513-1902GBR007959

PATIENT
  Age: 18 Year
  Sex: Male
  Weight: 55 kg

DRUGS (2)
  1. LYMECYCLINE [Concomitant]
     Active Substance: LYMECYCLINE
  2. FINASTERIDE. [Suspect]
     Active Substance: FINASTERIDE
     Indication: ALOPECIA
     Dosage: 0.25 MG EVERY 3 DAYS FOR A WEEK THEN 0.5MG EVERY 3 DAYS.
     Route: 048
     Dates: start: 20190122, end: 20190204

REACTIONS (2)
  - Depression suicidal [Unknown]
  - Feeling abnormal [Unknown]

NARRATIVE: CASE EVENT DATE: 20190202
